FAERS Safety Report 5818311-1 (Version None)
Quarter: 2008Q3

REPORT INFORMATION
  Report Type: 
  Country: None (occurrence: None)
  Receive Date: 20080722
  Receipt Date: 20080710
  Transmission Date: 20090109
  Serious: Yes (Other)
  Sender: FDA-Public Use
  Company Number: DE-PFIZER INC-2008052176

PATIENT
  Age: 69 Year
  Sex: Male

DRUGS (7)
  1. LYRICA [Suspect]
     Indication: POLYNEUROPATHY
     Route: 048
  2. BETA BLOCKING AGENTS [Concomitant]
  3. ALL OTHER THERAPEUTIC PRODUCTS [Concomitant]
  4. MIRTAZAPINE [Concomitant]
     Indication: SLEEP DISORDER
     Dosage: FREQ:AS NEEDED
  5. CARVEDILOL [Concomitant]
  6. MELATONIN [Concomitant]
  7. ANTIHYPERTENSIVES [Concomitant]

REACTIONS (5)
  - DIZZINESS [None]
  - SUPRAVENTRICULAR EXTRASYSTOLES [None]
  - TACHYCARDIA [None]
  - VENTRICULAR EXTRASYSTOLES [None]
  - WEIGHT INCREASED [None]
